FAERS Safety Report 4509317-3 (Version None)
Quarter: 2004Q4

REPORT INFORMATION
  Report Type: 
  Country: None (occurrence: None)
  Receive Date: 20041025
  Receipt Date: 20040806
  Transmission Date: 20050328
  Serious: Yes (Hospitalization)
  Sender: FDA-Public Use
  Company Number: US-JNJFOC-20040802390

PATIENT
  Age: 72 Year
  Sex: Male

DRUGS (6)
  1. INFLIXIMAB (INFLIXIMAB, RECOMBINANT) LYOPHILIZED POWDER [Suspect]
     Indication: RHEUMATOID ARTHRITIS
     Dates: start: 20020220
  2. CALTRATE (CALCIUM CARBONATE) [Concomitant]
  3. FUROSEMIDE [Concomitant]
  4. IRON SUPPLEMENT (IRON) [Concomitant]
  5. ISOSORBIDE (ISOSORBIDE) [Concomitant]
  6. ZOCOR [Concomitant]

REACTIONS (1)
  - UPPER GASTROINTESTINAL HAEMORRHAGE [None]
